FAERS Safety Report 15801888 (Version 2)
Quarter: 2019Q1

REPORT INFORMATION
  Report Type: Spontaneous
  Country: US (occurrence: US)
  Receive Date: 20190109
  Receipt Date: 20190222
  Transmission Date: 20190417
  Serious: No
  Sender: FDA-Public Use
  Company Number: US-009507513-1812USA012882

PATIENT
  Age: 17 Year
  Sex: Female
  Weight: 57.14 kg

DRUGS (3)
  1. NEXPLANON [Suspect]
     Active Substance: ETONOGESTREL
     Indication: DYSMENORRHOEA
     Dosage: 1 IMPLANT, ONCE
     Route: 059
     Dates: start: 20181227, end: 20181227
  2. ALBUTEROL. [Concomitant]
     Active Substance: ALBUTEROL
     Indication: ASTHMA
     Dosage: 2 PUFFS 3 X PRN
     Route: 055
     Dates: start: 20180908
  3. NEXPLANON [Suspect]
     Active Substance: ETONOGESTREL
     Dosage: 1 IMPLANT, EVERY 3 YEARS
     Route: 059
     Dates: start: 20181227

REACTIONS (5)
  - Product use in unapproved indication [Unknown]
  - No adverse event [Unknown]
  - Complication of device insertion [Recovered/Resolved]
  - Product quality issue [Unknown]
  - Device deployment issue [Recovered/Resolved]

NARRATIVE: CASE EVENT DATE: 20181227
